FAERS Safety Report 4457377-0 (Version None)
Quarter: 2004Q3

REPORT INFORMATION
  Report Type: 
  Country: None (occurrence: None)
  Receive Date: 20040921
  Receipt Date: 20040908
  Transmission Date: 20050211
  Serious: Yes (Hospitalization)
  Sender: FDA-Public Use
  Company Number: B0344861A

PATIENT
  Age: 48 Year
  Sex: Male

DRUGS (1)
  1. AUGMENTIN [Suspect]
     Dosage: ORAL
     Route: 048
     Dates: start: 20010101, end: 20010101

REACTIONS (7)
  - BLOOD PRESSURE DECREASED [None]
  - DIARRHOEA [None]
  - DIZZINESS [None]
  - MALAISE [None]
  - PRURITUS GENERALISED [None]
  - SKIN TEST POSITIVE [None]
  - VOMITING [None]
